FAERS Safety Report 12765930 (Version 1)
Quarter: 2016Q3

REPORT INFORMATION
  Report Type: Spontaneous
  Country: US (occurrence: US)
  Receive Date: 20160915
  Receipt Date: 20160915
  Transmission Date: 20161109
  Serious: No
  Sender: FDA-Public Use
  Company Number: None

PATIENT
  Age: 56 Year
  Sex: Female

DRUGS (1)
  1. HUMIRA [Suspect]
     Active Substance: ADALIMUMAB
     Indication: CROHN^S DISEASE
     Dosage: HUMIRA 40MG - SUBCUTANEOUSLY - ONCE EVERY 14 DAYS
     Route: 058
     Dates: start: 20160421

REACTIONS (2)
  - Fatigue [None]
  - Night sweats [None]

NARRATIVE: CASE EVENT DATE: 20160501
